FAERS Safety Report 6435135-5 (Version None)
Quarter: 2009Q4

REPORT INFORMATION
  Report Type: 
  Country: None (occurrence: None)
  Receive Date: 20091110
  Receipt Date: 20091029
  Transmission Date: 20100525
  Serious: Yes (Hospitalization)
  Sender: FDA-Public Use
  Company Number: CZ-WATSON-2009-09263

PATIENT
  Age: 79 Year
  Sex: Male

DRUGS (1)
  1. VERAPAMIL HYDROCHLORIDE (WATSON LABORATORIES) [Suspect]
     Indication: SUICIDE ATTEMPT
     Dosage: 6.0 - 7.2 G, SINGLE
     Route: 048

REACTIONS (4)
  - COMA [None]
  - HAEMODYNAMIC INSTABILITY [None]
  - HEART RATE DECREASED [None]
  - HYPOTENSION [None]
